FAERS Safety Report 19881973 (Version 1)
Quarter: 2021Q3

REPORT INFORMATION
  Report Type: Report from Study
  Country: US (occurrence: US)
  Receive Date: 20210925
  Receipt Date: 20210925
  Transmission Date: 20211014
  Serious: Yes (Death, Hospitalization, Other)
  Sender: FDA-Public Use
  Company Number: US-SA-2021SA058345

PATIENT
  Age: 63 Year
  Sex: Female

DRUGS (2)
  1. SARILUMAB [Suspect]
     Active Substance: SARILUMAB
     Indication: RHEUMATOID ARTHRITIS
     Dosage: 200 MG, QOW
     Route: 058
     Dates: start: 20200610
  2. SARILUMAB [Suspect]
     Active Substance: SARILUMAB
     Dosage: 200 MG, QOW
     Route: 058
     Dates: start: 20200718, end: 20210920

REACTIONS (4)
  - Bacterial infection [Not Recovered/Not Resolved]
  - Product dose omission issue [Unknown]
  - Blood glucose increased [Unknown]
  - Death [Fatal]

NARRATIVE: CASE EVENT DATE: 20210920
